FAERS Safety Report 11019055 (Version 2)
Quarter: 2015Q2

REPORT INFORMATION
  Report Type: Spontaneous
  Country: US (occurrence: US)
  Receive Date: 20150412
  Receipt Date: 20150525
  Transmission Date: 20150821
  Serious: Yes (Other)
  Sender: FDA-Public Use
  Company Number: US-JNJFOC-20100807367

PATIENT
  Age: 48 Year
  Sex: Male

DRUGS (5)
  1. LEVAQUIN [Suspect]
     Active Substance: LEVOFLOXACIN
     Indication: EAR INFECTION
     Route: 048
     Dates: start: 2000, end: 20080701
  2. METHYLPREDNISOLONE. [Suspect]
     Active Substance: METHYLPREDNISOLONE
     Indication: ANTIINFLAMMATORY THERAPY
     Route: 065
  3. MERIDIA [Concomitant]
     Active Substance: SIBUTRAMINE HYDROCHLORIDE
     Indication: DECREASED APPETITE
     Route: 065
     Dates: start: 20000523
  4. PREDNISONE. [Suspect]
     Active Substance: PREDNISONE
     Indication: ANTIINFLAMMATORY THERAPY
     Route: 065
  5. BENICAR [Concomitant]
     Active Substance: OLMESARTAN MEDOXOMIL
     Indication: HYPERTENSION
     Route: 065
     Dates: start: 20001023

REACTIONS (9)
  - Muscle rupture [Unknown]
  - Arthralgia [Unknown]
  - Tendon rupture [Unknown]
  - Tendonitis [Unknown]
  - Bursitis [Unknown]
  - Photosensitivity reaction [Unknown]
  - Tendon rupture [Unknown]
  - Blood glucose increased [Unknown]
  - Epicondylitis [Unknown]

NARRATIVE: CASE EVENT DATE: 200701
